FAERS Safety Report 6804982-X (Version None)
Quarter: 2010Q2

REPORT INFORMATION
  Report Type: 
  Country: None (occurrence: None)
  Receive Date: 20100628
  Receipt Date: 20070803
  Transmission Date: 20101027
  Serious: No
  Sender: FDA-Public Use
  Company Number: US-PFIZER INC-2007064638

PATIENT
  Age: 86 Year
  Sex: Female

DRUGS (4)
  1. NIFEDIPINE [Suspect]
     Indication: HYPERTENSION
     Route: 048
  2. COREG [Concomitant]
     Dates: start: 20070722
  3. DIGITALIS TAB [Concomitant]
  4. SYNTHROID [Concomitant]

REACTIONS (1)
  - BLOOD PRESSURE INADEQUATELY CONTROLLED [None]
